FAERS Safety Report 24530611 (Version 1)
Quarter: 2024Q4

REPORT INFORMATION
  Report Type: Spontaneous
  Country: DE (occurrence: DE)
  Receive Date: 20241021
  Receipt Date: 20241021
  Transmission Date: 20250115
  Serious: Yes (Death, Hospitalization)
  Sender: MYLAN
  Company Number: DE-STADA-01300439

PATIENT
  Age: 73 Year
  Sex: Male

DRUGS (10)
  1. CLOZAPINE [Suspect]
     Active Substance: CLOZAPINE
     Indication: Hallucination
     Dosage: 25 MILLIGRAM, QD
     Route: 048
     Dates: start: 20240618
  2. GABAPENTIN [Concomitant]
     Active Substance: GABAPENTIN
     Indication: Pain
     Dosage: 1200 MILLIGRAM, QD (TOTAL DAILY DOSE 1200MG)
     Route: 048
  3. MAGNESIUM [Concomitant]
     Active Substance: MAGNESIUM
     Indication: Malnutrition
     Dosage: 80 MILLIGRAM, QD (TOTAL DAILY DOSE 80MG)
     Route: 048
  4. CARBIDOPA\ENTACAPONE\LEVODOPA [Concomitant]
     Active Substance: CARBIDOPA\ENTACAPONE\LEVODOPA
     Indication: Parkinson^s disease
     Dosage: MORNING BOLUS DOSE OF 4 ML, CONTINUOUS MAINTENANCE DOSE OF 69.25 ML/DAY, 6 EXTRA BOLUS DOSE
     Route: 065
     Dates: start: 20240205, end: 20240921
  5. TAPENTADOL [Concomitant]
     Active Substance: TAPENTADOL
     Indication: Pain
     Dosage: 50 MILLIGRAM, QD  (ACUTE, TOTAL DAILY DOSE 50MG)
     Route: 048
  6. TAPENTADOL [Concomitant]
     Active Substance: TAPENTADOL
     Dosage: 100 MILLIGRAM, QD (RETARD, TOTAL DAILY DOSE 100MG)
     Route: 048
  7. LATANOPROST\TIMOLOL [Concomitant]
     Active Substance: LATANOPROST\TIMOLOL
     Indication: Orthostatic hypotension
     Dosage: 5 MILLIGRAM, QD (TOTAL DAILY DOSE 5MG)
     Route: 057
  8. TROSPIUM CHLORIDE [Concomitant]
     Active Substance: TROSPIUM CHLORIDE
     Indication: Pollakiuria
     Dosage: 22.5 MILLIGRAM, QD (TOTAL DAILY DOSE 22.5MG)
     Route: 048
  9. ENOXAPARIN SODIUM [Concomitant]
     Active Substance: ENOXAPARIN SODIUM
     Indication: Pulmonary embolism
     Dosage: 60 MILLIGRAM, QD (MULTIDOSE))
     Route: 058
     Dates: start: 20240806, end: 20240806
  10. VALPROIC ACID [Concomitant]
     Active Substance: VALPROIC ACID
     Indication: Epilepsy
     Dosage: 1800 MILLIGRAM, QD (VIAL)
     Route: 042
     Dates: start: 20240820, end: 20240821

REACTIONS (2)
  - Epilepsy [Fatal]
  - Contraindicated product administered [Fatal]

NARRATIVE: CASE EVENT DATE: 20240820
